FAERS Safety Report 7783195-1 (Version None)
Quarter: 2011Q3

REPORT INFORMATION
  Report Type: 
  Country: None (occurrence: None)
  Receive Date: 20110928
  Receipt Date: 20100222
  Transmission Date: 20111222
  Serious: No
  Sender: FDA-Public Use
  Company Number: US-MYLANLABS-2010S1001805

PATIENT
  Age: 81 Year
  Sex: Male

DRUGS (10)
  1. PROTONIX [Concomitant]
  2. NITRGLYCERIN TRANSDERMAL SYSTEM [Suspect]
     Indication: PROPHYLAXIS
     Dosage: Q24H
     Route: 062
     Dates: start: 20100108, end: 20100208
  3. LOVASTATIN [Concomitant]
  4. LISINOPRIL [Concomitant]
  5. METOPROLOL TARTRATE [Concomitant]
  6. NITRGLYCERIN TRANSDERMAL SYSTEM [Suspect]
     Indication: ANGINA PECTORIS
     Dosage: Q24H
     Route: 062
     Dates: start: 20100108, end: 20100208
  7. PLAVIX [Concomitant]
  8. LASIX [Concomitant]
  9. CARDURA [Concomitant]
  10. ARICEPT [Concomitant]

REACTIONS (2)
  - INCORRECT DRUG ADMINISTRATION DURATION [None]
  - APPLICATION SITE HAEMATOMA [None]
